FAERS Safety Report 9786906 (Version 5)
Quarter: 2014Q2

REPORT INFORMATION
  Report Type: Spontaneous
  Country: US (occurrence: US)
  Receive Date: 20131227
  Receipt Date: 20140408
  Transmission Date: 20141212
  Serious: Yes (Life-Threatening, Hospitalization)
  Sender: FDA-Public Use
  Company Number: US-ACTELION-A-US2013-92721

PATIENT
  Age: 56 Week
  Sex: Male

DRUGS (6)
  1. TRACLEER [Suspect]
     Indication: PULMONARY ARTERIAL HYPERTENSION
     Dosage: 15.625 MG, BID
     Route: 048
     Dates: start: 20130923
  2. TRACLEER [Suspect]
     Dosage: 31.25 MG, BID
     Route: 048
  3. VENTAVIS [Suspect]
     Indication: PULMONARY ARTERIAL HYPERTENSION
     Dosage: UNK
     Route: 055
  4. VELETRI [Suspect]
     Indication: PULMONARY ARTERIAL HYPERTENSION
     Dosage: 30 NG/KG, PER MIN
     Route: 042
     Dates: start: 20130219
  5. VELETRI [Suspect]
     Dosage: 30 NG/KG, PER MIN
     Route: 042
     Dates: start: 20131227
  6. SILDENAFIL [Concomitant]

REACTIONS (11)
  - Respiratory syncytial virus bronchiolitis [Recovering/Resolving]
  - Convulsion [Recovering/Resolving]
  - Depressed level of consciousness [Recovering/Resolving]
  - Pulmonary hypertension [Recovering/Resolving]
  - Cardiac arrest [Recovering/Resolving]
  - Cardiac operation [Recovering/Resolving]
  - Respiratory arrest [Recovering/Resolving]
  - Cardiac output decreased [Recovering/Resolving]
  - Feeling cold [Recovering/Resolving]
  - Cyanosis [Recovering/Resolving]
  - Syncope [Recovering/Resolving]
